FAERS Safety Report 12163412 (Version 1)
Quarter: 2016Q1

REPORT INFORMATION
  Report Type: Spontaneous
  Country: US (occurrence: None)
  Receive Date: 20160308
  Receipt Date: 20160308
  Transmission Date: 20160526
  Serious: Yes (Other)
  Sender: FDA-Public Use
  Company Number: None

PATIENT
  Age: 51 Year
  Sex: Male

DRUGS (1)
  1. GLATOPA [Suspect]
     Active Substance: GLATIRAMER ACETATE
     Indication: MULTIPLE SCLEROSIS
     Route: 058
     Dates: start: 201508, end: 201511

REACTIONS (4)
  - Injection site reaction [None]
  - Injection site pain [None]
  - Product substitution issue [None]
  - Injection site swelling [None]

NARRATIVE: CASE EVENT DATE: 20150810
